FAERS Safety Report 9915654 (Version 1)
Quarter: 2014Q1

REPORT INFORMATION
  Report Type: Spontaneous
  Country: US (occurrence: US)
  Receive Date: 20140221
  Receipt Date: 20140221
  Transmission Date: 20141002
  Serious: Yes (Hospitalization, Other)
  Sender: FDA-Public Use
  Company Number: US-AMGEN-USASP2014011451

PATIENT
  Age: 62 Year
  Sex: Female

DRUGS (3)
  1. PROLIA [Suspect]
     Indication: PRODUCT USED FOR UNKNOWN INDICATION
     Dosage: UNK
     Route: 065
     Dates: start: 201302
  2. CITRACAL                           /00751520/ [Concomitant]
  3. VITAMIN D                          /00107901/ [Concomitant]

REACTIONS (4)
  - Road traffic accident [Unknown]
  - Sternal fracture [Recovering/Resolving]
  - Thoracic vertebral fracture [Recovering/Resolving]
  - Musculoskeletal discomfort [Unknown]
